FAERS Safety Report 7208346-9 (Version None)
Quarter: 2010Q4

REPORT INFORMATION
  Report Type: 
  Country: None (occurrence: None)
  Receive Date: 20101222
  Receipt Date: 20101109
  Transmission Date: 20110411
  Serious: Yes (Death)
  Sender: FDA-Public Use
  Company Number: 011883

PATIENT
  Age: 50 Year
  Sex: 0

DRUGS (2)
  1. BUSULFEX [Suspect]
     Indication: BONE MARROW TRANSPLANT
  2. CYCLOPHOSPHAMIDE [Concomitant]

REACTIONS (1)
  - ACUTE MYELOID LEUKAEMIA RECURRENT [None]
